FAERS Safety Report 8902358 (Version 1)
Quarter: 2012Q4

REPORT INFORMATION
  Report Type: Report from Study
  Country: JP (occurrence: JP)
  Receive Date: 20121112
  Receipt Date: 20121112
  Transmission Date: 20130627
  Serious: Yes (Hospitalization)
  Sender: FDA-Public Use
  Company Number: JP-VERTEX PHARMACEUTICAL INC.-AE-2012-009478

PATIENT
  Age: 64 Year
  Sex: Female

DRUGS (11)
  1. VX-950 (TELAPREVIR) [Suspect]
     Indication: CHRONIC HEPATITIS C
     Dosage: 2250 mg, qd
     Route: 048
     Dates: start: 20120418, end: 20120420
  2. REBETOL [Suspect]
     Indication: CHRONIC HEPATITIS C
     Dosage: 600 mg, qd
     Route: 048
     Dates: start: 20120418, end: 20120710
  3. REBETOL [Suspect]
     Dosage: 400 mg, qd
     Route: 048
     Dates: start: 20120711
  4. PEGINTERFERON ALFA-2B [Suspect]
     Indication: CHRONIC HEPATITIS C
     Dosage: 1.5 ?g/kg, qw
     Route: 058
     Dates: start: 20120418
  5. PEGINTERFERON ALFA-2B [Suspect]
     Dosage: 100 ?g/kg, qw
     Route: 058
  6. TALION                             /01587402/ [Concomitant]
     Dosage: 20 mg, qd
     Route: 048
     Dates: start: 20120417
  7. CALONAL [Concomitant]
     Dosage: 600 mg, qd
     Route: 048
     Dates: start: 20120418
  8. PERAPRIN                           /00041901/ [Concomitant]
     Dosage: 10 mg, prn
     Route: 048
     Dates: start: 20120422
  9. PARIET [Concomitant]
     Dosage: 10 mg, qd
     Route: 048
     Dates: start: 20120429
  10. FLORID                             /00310801/ [Concomitant]
     Dosage: 300 mg, prn
     Route: 048
     Dates: start: 20120502, end: 20120502
  11. LENDORMIN [Suspect]
     Dosage: 0.25 mg, prn
     Route: 048
     Dates: start: 2007

REACTIONS (2)
  - Drug eruption [Recovered/Resolved]
  - Anaemia [None]
